FAERS Safety Report 9974020 (Version 1)
Quarter: 2014Q1

REPORT INFORMATION
  Report Type: Report from Study
  Country: US (occurrence: US)
  Receive Date: 20140306
  Receipt Date: 20140306
  Transmission Date: 20141002
  Serious: No
  Sender: FDA-Public Use
  Company Number: US-ABBVIE-13P-163-1159468-00

PATIENT
  Age: 36 Year
  Sex: Male
  Weight: 83.99 kg

DRUGS (5)
  1. HUMIRA [Suspect]
     Indication: CROHN^S DISEASE
     Dosage: LOADING DOSE
     Dates: start: 201210, end: 201210
  2. HUMIRA [Suspect]
     Dosage: SECOND DOSE
     Dates: start: 2012, end: 2012
  3. HUMIRA [Suspect]
     Dates: start: 2012, end: 201309
  4. PROTONIX [Concomitant]
     Indication: GASTRIC DISORDER
  5. ZOFRAN [Concomitant]
     Indication: NAUSEA

REACTIONS (4)
  - Drug dose omission [Not Recovered/Not Resolved]
  - Abdominal pain [Not Recovered/Not Resolved]
  - Gastrointestinal inflammation [Not Recovered/Not Resolved]
  - Nausea [Not Recovered/Not Resolved]
